FAERS Safety Report 7596995-8 (Version None)
Quarter: 2011Q3

REPORT INFORMATION
  Report Type: 
  Country: None (occurrence: None)
  Receive Date: 20110708
  Receipt Date: 20110705
  Transmission Date: 20111222
  Serious: Yes (Hospitalization)
  Sender: FDA-Public Use
  Company Number: JP-SANOFI-AVENTIS-2011SA042509

PATIENT
  Age: 62 Year
  Sex: Male

DRUGS (6)
  1. RILUTEK [Suspect]
     Route: 048
  2. BENZODIAZEPINE DERIVATIVES [Suspect]
     Route: 048
     Dates: start: 20110705, end: 20110705
  3. ALL OTHER THERAPEUTIC PRODUCTS [Concomitant]
     Route: 048
  4. BENZODIAZEPINE DERIVATIVES [Suspect]
     Route: 048
  5. ALL OTHER THERAPEUTIC PRODUCTS [Concomitant]
     Route: 048
     Dates: start: 20110705, end: 20110705
  6. RILUTEK [Suspect]
     Route: 048
     Dates: start: 20110705, end: 20110705

REACTIONS (3)
  - OVERDOSE [None]
  - LOSS OF CONSCIOUSNESS [None]
  - LIVER DISORDER [None]
